FAERS Safety Report 4609778-5 (Version None)
Quarter: 2005Q1

REPORT INFORMATION
  Report Type: 
  Country: None (occurrence: None)
  Receive Date: 20050314
  Receipt Date: 20050301
  Transmission Date: 20050727
  Serious: Yes (Other)
  Sender: FDA-Public Use
  Company Number: HQWYE747802MAR05

PATIENT
  Age: 87 Year
  Sex: Female

DRUGS (1)
  1. CORDARONE [Suspect]
     Indication: ATRIAL FIBRILLATION
     Route: 048

REACTIONS (4)
  - C-REACTIVE PROTEIN INCREASED [None]
  - HYPERGAMMAGLOBULINAEMIA [None]
  - INTERSTITIAL LUNG DISEASE [None]
  - RED BLOOD CELL SEDIMENTATION RATE INCREASED [None]
